FAERS Safety Report 9472480 (Version 1)
Quarter: 2013Q3

REPORT INFORMATION
  Report Type: Spontaneous
  Country: US (occurrence: None)
  Receive Date: 20130821
  Receipt Date: 20130821
  Transmission Date: 20140515
  Serious: No
  Sender: FDA-Public Use
  Company Number: None

PATIENT
  Age: 22 Year
  Sex: Female
  Weight: 63.5 kg

DRUGS (1)
  1. ABILIFY [Suspect]
     Dosage: 1 TABS (5 MG), QHS/BEDTIME, ORAL
     Route: 048
     Dates: start: 20130807, end: 20130808

REACTIONS (1)
  - Rash [None]
